FAERS Safety Report 6221590-2 (Version None)
Quarter: 2009Q2

REPORT INFORMATION
  Report Type: 
  Country: None (occurrence: None)
  Receive Date: 20090610
  Receipt Date: 20081008
  Transmission Date: 20091009
  Serious: Yes (Death)
  Sender: FDA-Public Use
  Company Number: US-JNJFOC-20080405837

PATIENT
  Sex: Female
  Weight: 78.02 kg

DRUGS (6)
  1. ORTHO EVRA [Suspect]
     Indication: CONTRACEPTION
     Route: 062
  2. SKELAXIN [Concomitant]
     Indication: MUSCLE STRAIN
  3. AMOXICILLIN [Concomitant]
     Indication: UPPER RESPIRATORY TRACT INFECTION
  4. HYDROCODONE BITARTRATE [Concomitant]
     Indication: PAIN
  5. CIPRO [Concomitant]
     Indication: PNEUMONIA
  6. ZITHROMAX [Concomitant]
     Indication: PNEUMONIA

REACTIONS (2)
  - DEEP VEIN THROMBOSIS [None]
  - PULMONARY EMBOLISM [None]
